FAERS Safety Report 4523148-X (Version None)
Quarter: 2004Q4

REPORT INFORMATION
  Report Type: 
  Country: None (occurrence: None)
  Receive Date: 20041208
  Receipt Date: 20041126
  Transmission Date: 20050328
  Serious: Yes (Life-Threatening, Other)
  Sender: FDA-Public Use
  Company Number: 8008197

PATIENT
  Age: 23 Year
  Sex: Female
  Weight: 116.2 kg

DRUGS (1)
  1. KEPPRA [Suspect]
     Indication: EPILEPSY
     Dosage: 1.5 G 2/D PO
     Route: 048
     Dates: start: 20011225

REACTIONS (1)
  - ANGIONEUROTIC OEDEMA [None]
